FAERS Safety Report 18285349 (Version 1)
Quarter: 2020Q3

REPORT INFORMATION
  Report Type: Spontaneous
  Country: US (occurrence: US)
  Receive Date: 20200918
  Receipt Date: 20200918
  Transmission Date: 20201103
  Serious: Yes (Other)
  Sender: FDA-Public Use
  Company Number: US-TEVA-2020-US-1829207

PATIENT
  Sex: Female

DRUGS (7)
  1. HYDROCODONE AND ACETAMINOPHEN TABLETS [Suspect]
     Active Substance: ACETAMINOPHEN\HYDROCODONE
     Route: 065
  2. TRAMADOL EXTENDED?RELEASE TABLETS [Suspect]
     Active Substance: TRAMADOL HYDROCHLORIDE
     Route: 065
  3. ACETAMIN?CODEINE [Suspect]
     Active Substance: ACETAMINOPHEN\CODEINE PHOSPHATE
     Route: 065
  4. NORCO [Suspect]
     Active Substance: ACETAMINOPHEN\HYDROCODONE BITARTRATE
     Route: 065
  5. ULTRAM [Suspect]
     Active Substance: TRAMADOL HYDROCHLORIDE
     Route: 065
  6. OXYCONTIN [Suspect]
     Active Substance: OXYCODONE HYDROCHLORIDE
     Route: 065
  7. OXYCODONE AND ACETAMINOPHEN [Suspect]
     Active Substance: ACETAMINOPHEN\OXYCODONE HYDROCHLORIDE
     Route: 065

REACTIONS (2)
  - Dependence [Unknown]
  - Drug withdrawal syndrome [Unknown]
